FAERS Safety Report 9772166 (Version 3)
Quarter: 2014Q1

REPORT INFORMATION
  Report Type: Spontaneous
  Country: US (occurrence: US)
  Receive Date: 20131219
  Receipt Date: 20140311
  Transmission Date: 20141002
  Serious: Yes (Disabling, Other)
  Sender: FDA-Public Use
  Company Number: US-009507513-1312USA007015

PATIENT
  Sex: Female
  Weight: 63.49 kg

DRUGS (1)
  1. NEXPLANON [Suspect]
     Indication: CONTRACEPTION
     Dosage: IMPLANT, INTO LEFT ARM
     Route: 059
     Dates: start: 20130103, end: 20131213

REACTIONS (3)
  - Implant site abscess [Recovered/Resolved]
  - Implant site cellulitis [Recovered/Resolved]
  - Pain in extremity [Recovering/Resolving]
